FAERS Safety Report 14033370 (Version 1)
Quarter: 2017Q4

REPORT INFORMATION
  Report Type: Spontaneous
  Country: US (occurrence: US)
  Receive Date: 20171002
  Receipt Date: 20171002
  Transmission Date: 20180321
  Serious: Yes (Other)
  Sender: FDA-Public Use
  Company Number: None

PATIENT
  Age: 31 Year
  Sex: Female

DRUGS (12)
  1. DEXAMETHASONE. [Concomitant]
     Active Substance: DEXAMETHASONE
  2. B COMPLEX-VITAMIN C-FOLIC ACID [Concomitant]
  3. REVLIMID [Concomitant]
     Active Substance: LENALIDOMIDE
  4. SEVELAMER [Concomitant]
     Active Substance: SEVELAMER
  5. ESTER-C [Concomitant]
     Active Substance: CALCIUM\VITAMINS
  6. CYCLOPHOSPHAMIDE. [Suspect]
     Active Substance: CYCLOPHOSPHAMIDE
     Indication: PLASMA CELL MYELOMA
     Dosage: ?          OTHER FREQUENCY:ONCE WEEKLY;?
     Route: 048
     Dates: start: 20170318, end: 20170923
  7. VELCADE [Concomitant]
     Active Substance: BORTEZOMIB
  8. ZOLEDRONIC ACID [Concomitant]
     Active Substance: ZOLEDRONIC ACID
  9. ONDANSETRON [Concomitant]
     Active Substance: ONDANSETRON
  10. PROCHLORPERAZINE. [Concomitant]
     Active Substance: PROCHLORPERAZINE
  11. AMITRIPTYLINE [Concomitant]
     Active Substance: AMITRIPTYLINE
  12. LORAZEPAM. [Concomitant]
     Active Substance: LORAZEPAM

REACTIONS (6)
  - Wrong technique in product usage process [None]
  - Nausea [None]
  - Weight decreased [None]
  - Pain [None]
  - Vomiting [None]
  - Paraesthesia [None]

NARRATIVE: CASE EVENT DATE: 20171002
